FAERS Safety Report 10705149 (Version 2)
Quarter: 2015Q1

REPORT INFORMATION
  Report Type: Spontaneous
  Country: US (occurrence: None)
  Receive Date: 20150108
  Receipt Date: 20150204
  Transmission Date: 20150721
  Serious: Yes (Disabling, Other)
  Sender: FDA-Public Use
  Company Number: DEP_02435_2015

PATIENT
  Sex: Female
  Weight: 113.4 kg

DRUGS (33)
  1. HUMALOG [Concomitant]
     Active Substance: INSULIN LISPRO
  2. METFORMINE HCL [Concomitant]
     Active Substance: METFORMIN HYDROCHLORIDE
  3. ADVAIR DISKUS [Concomitant]
     Active Substance: FLUTICASONE PROPIONATE\SALMETEROL XINAFOATE
  4. IBUPROFEN. [Concomitant]
     Active Substance: IBUPROFEN
  5. VICODIN [Concomitant]
     Active Substance: ACETAMINOPHEN\HYDROCODONE BITARTRATE
  6. PROZAC [Concomitant]
     Active Substance: FLUOXETINE HYDROCHLORIDE
  7. CARISOPRODOL. [Concomitant]
     Active Substance: CARISOPRODOL
  8. CAMBIA [Suspect]
     Active Substance: DICLOFENAC POTASSIUM
     Indication: MIGRAINE
     Dosage: 50 MG DISSOLVED IN WATER, AS NEEDED
     Route: 048
     Dates: start: 2008
  9. VOLTAREN [Concomitant]
     Active Substance: DICLOFENAC SODIUM
  10. LIDOCAINE. [Concomitant]
     Active Substance: LIDOCAINE
  11. ALBUTEROL SULFATE. [Concomitant]
     Active Substance: ALBUTEROL SULFATE
  12. XANAX [Concomitant]
     Active Substance: ALPRAZOLAM
  13. CELEBREX [Concomitant]
     Active Substance: CELECOXIB
  14. PROAIR HFA [Concomitant]
     Active Substance: ALBUTEROL SULFATE
  15. AMBIEN [Concomitant]
     Active Substance: ZOLPIDEM TARTRATE
  16. PANTOPRAZOLE SODIUM [Concomitant]
     Active Substance: PANTOPRAZOLE SODIUM
  17. TRAMADOL HCL [Concomitant]
     Active Substance: TRAMADOL HYDROCHLORIDE
  18. HYDROXYZINE HCL [Concomitant]
     Active Substance: HYDROXYZINE HYDROCHLORIDE
  19. FLEXERIL [Concomitant]
     Active Substance: CYCLOBENZAPRINE HYDROCHLORIDE
  20. HYOSCYAMINE SULFATE. [Concomitant]
     Active Substance: HYOSCYAMINE SULFATE
  21. ZOFRAN [Concomitant]
     Active Substance: ONDANSETRON HYDROCHLORIDE
  22. PREMARIN [Concomitant]
     Active Substance: ESTROGENS, CONJUGATED
  23. DILTIAZEM HCL [Concomitant]
     Active Substance: DILTIAZEM HYDROCHLORIDE
  24. XOLAIR [Concomitant]
     Active Substance: OMALIZUMAB
  25. AMITRIPTYLINE HCL [Concomitant]
     Active Substance: AMITRIPTYLINE
  26. CHILDREN^S ZYRTEC ALLERGY [Concomitant]
  27. ATORVASTATIN CALCIUIM [Concomitant]
  28. ASTEPRO [Concomitant]
     Active Substance: AZELASTINE HYDROCHLORIDE
  29. LANTUS SOLOSTAR [Concomitant]
     Active Substance: INSULIN GLARGINE
  30. MONTELUKAST SODIUM. [Concomitant]
     Active Substance: MONTELUKAST SODIUM
  31. SPIRIVA [Concomitant]
     Active Substance: TIOTROPIUM BROMIDE MONOHYDRATE
  32. HYDROCODONE BITARTRATE AND ACETAMINOPHEN [Concomitant]
     Active Substance: ACETAMINOPHEN\HYDROCODONE BITARTRATE
  33. FUROSEMIDE. [Concomitant]
     Active Substance: FUROSEMIDE

REACTIONS (5)
  - Fibromyalgia [None]
  - Osteoarthritis [None]
  - Pain [None]
  - Arthralgia [None]
  - Type 2 diabetes mellitus [None]

NARRATIVE: CASE EVENT DATE: 2010
